FAERS Safety Report 8329804-X (Version None)
Quarter: 2012Q2

REPORT INFORMATION
  Report Type: 
  Country: None (occurrence: None)
  Receive Date: 20120502
  Receipt Date: 20120425
  Transmission Date: 20120825
  Serious: Yes (Hospitalization, Other)
  Sender: FDA-Public Use
  Company Number: US-MPIJNJ-2012-02490

PATIENT
  Sex: Male
  Weight: 86.2 kg

DRUGS (4)
  1. VELCADE [Suspect]
     Dosage: 1 MG/M2, CYCLIC
  2. REVLIMID [Suspect]
     Indication: MULTIPLE MYELOMA
     Dosage: 25 MG, QD
     Route: 048
     Dates: start: 20101221
  3. VELCADE [Suspect]
     Indication: MULTIPLE MYELOMA
     Dosage: UNK
     Dates: start: 20101221
  4. DEXAMETHASONE [Suspect]
     Indication: MULTIPLE MYELOMA
     Dosage: 20 MG, 1/WEEK
     Route: 048
     Dates: start: 20101221

REACTIONS (6)
  - ARTHRITIS BACTERIAL [None]
  - PNEUMONIA [None]
  - GOUT [None]
  - RENAL FAILURE ACUTE [None]
  - NEUROPATHY PERIPHERAL [None]
  - PYREXIA [None]
